FAERS Safety Report 17681371 (Version 4)
Quarter: 2020Q3

REPORT INFORMATION
  Report Type: Report from Study
  Country: ZA (occurrence: ZA)
  Receive Date: 20200417
  Receipt Date: 20200907
  Transmission Date: 20201102
  Serious: Yes (Disabling)
  Sender: FDA-Public Use
  Company Number: NVSC2020ZA103214

PATIENT
  Age: 27 Year
  Sex: Female

DRUGS (1)
  1. TUVIGIN [Suspect]
     Active Substance: FINGOLIMOD HYDROCHLORIDE
     Indication: MULTIPLE SCLEROSIS
     Dosage: 0.5 MG, QD
     Route: 048
     Dates: start: 20200320

REACTIONS (8)
  - Pain in extremity [Recovering/Resolving]
  - Gait disturbance [Unknown]
  - Synovial cyst [Unknown]
  - Alopecia [Unknown]
  - Emotional disorder [Unknown]
  - Fall [Unknown]
  - Tibia fracture [Recovering/Resolving]
  - Crying [Unknown]

NARRATIVE: CASE EVENT DATE: 20200412
